FAERS Safety Report 5071605-2 (Version None)
Quarter: 2006Q3

REPORT INFORMATION
  Report Type: 
  Country: None (occurrence: None)
  Receive Date: 20060804
  Receipt Date: 20060725
  Transmission Date: 20061208
  Serious: Yes (Hospitalization)
  Sender: FDA-Public Use
  Company Number: 2006UW15030

PATIENT
  Age: 69 Year
  Sex: Female

DRUGS (3)
  1. SEROQUEL [Suspect]
     Route: 048
     Dates: start: 20030701, end: 20060501
  2. CYMBALTA [Concomitant]
     Route: 048
     Dates: start: 20041001
  3. DEPAKOTE [Concomitant]
     Route: 048

REACTIONS (4)
  - COGWHEEL RIGIDITY [None]
  - FALL [None]
  - GAIT DISTURBANCE [None]
  - MUSCULOSKELETAL STIFFNESS [None]
